FAERS Safety Report 9175650 (Version 1)
Quarter: 2012Q4

REPORT INFORMATION
  Report Type: 
  Country: US (occurrence: US)
  Receive Date: 20120912
  Receipt Date: 20120912
  Transmission Date: 20130627
  Serious: No
  Sender: FDA-Public Use
  Company Number: US-ASTRAZENECA-2012SE65992

PATIENT
  Age: 70 Year
  Sex: Female
  Weight: 52.2 kg

DRUGS (8)
  1. SYMBICORT PMDI [Suspect]
     Indication: SEASONAL ALLERGY
     Dosage: 160 MCG/4.5 MCG, 2 PUFFS TWICE A DAY
     Route: 055
     Dates: start: 201012
  2. SYMBICORT PMDI [Suspect]
     Indication: WHEEZING
     Dosage: 160 MCG/4.5 MCG, 2 PUFFS TWICE A DAY
     Route: 055
     Dates: start: 201012
  3. SYMBICORT PMDI [Suspect]
     Indication: SEASONAL ALLERGY
     Dosage: 160 MCG/4.5 MCG, 2 PUFFS DAILY
     Route: 055
  4. SYMBICORT PMDI [Suspect]
     Indication: WHEEZING
     Dosage: 160 MCG/4.5 MCG, 2 PUFFS DAILY
     Route: 055
  5. ATORVASTATIN [Concomitant]
     Indication: BLOOD CHOLESTEROL ABNORMAL
     Route: 048
     Dates: start: 201205
  6. DILTIAZEM [Concomitant]
     Indication: HYPERTENSION
     Route: 048
     Dates: start: 2007
  7. NIACIN [Concomitant]
     Indication: BLOOD CHOLESTEROL ABNORMAL
     Route: 048
     Dates: start: 201205
  8. MVI [Concomitant]
     Dosage: DAILY
     Route: 048

REACTIONS (6)
  - Breath odour [Unknown]
  - Dysgeusia [Unknown]
  - Increased upper airway secretion [Unknown]
  - Dysgeusia [Unknown]
  - Off label use [Unknown]
  - Intentional drug misuse [Unknown]
